FAERS Safety Report 8367637-9 (Version None)
Quarter: 2012Q2

REPORT INFORMATION
  Report Type: 
  Country: None (occurrence: None)
  Receive Date: 20120517
  Receipt Date: 20120508
  Transmission Date: 20120825
  Serious: Yes (Other)
  Sender: FDA-Public Use
  Company Number: US-ASTRAZENECA-2012SE29631

PATIENT
  Age: 58 Year
  Sex: Female
  Weight: 50.8 kg

DRUGS (8)
  1. LASOPRAZOLE [Concomitant]
     Dosage: SANDOZ MANUFACTURED GENERIC LANSOPRAZOLE, 30 MG, TWO TIMES A DAY
     Dates: start: 20120429, end: 20120501
  2. LASOPRAZOLE [Concomitant]
     Indication: BARRETT'S OESOPHAGUS
     Dosage: PRECAVID OR AUTHORICED GENERIC
     Dates: start: 20060101, end: 20120101
  3. MEDICAL MARIJUANA [Concomitant]
     Indication: SPINAL PAIN
  4. NEXIUM [Suspect]
     Route: 048
  5. SIMVASTATIN [Concomitant]
     Indication: BLOOD CHOLESTEROL INCREASED
     Route: 048
  6. RANITIDINE [Concomitant]
     Indication: BARRETT'S OESOPHAGUS
     Route: 048
  7. RANITIDINE [Concomitant]
     Indication: ULCER
     Route: 048
  8. BELLADONNA/PHENOBARB [Concomitant]
     Indication: ABDOMINAL DISCOMFORT
     Dosage: UNKNOWN, FOUR TIMES A DAY
     Route: 048

REACTIONS (1)
  - ANAPHYLACTIC REACTION [None]
